FAERS Safety Report 7390134-4 (Version None)
Quarter: 2011Q2

REPORT INFORMATION
  Report Type: 
  Country: None (occurrence: None)
  Receive Date: 20110401
  Receipt Date: 20110321
  Transmission Date: 20111010
  Serious: Yes (Other)
  Sender: FDA-Public Use
  Company Number: PHHY2011US21237

PATIENT
  Age: 38 Year
  Sex: Female

DRUGS (4)
  1. DITROPAN [Concomitant]
     Dosage: UNK
  2. GILENYA [Suspect]
     Indication: MULTIPLE SCLEROSIS
     Dosage: 0.5 MG, QD
     Route: 048
     Dates: start: 20110224
  3. BACLOFEN [Concomitant]
     Dosage: UNK
  4. ZOLOFT [Concomitant]
     Dosage: UNK

REACTIONS (7)
  - HEADACHE [None]
  - URINARY TRACT INFECTION [None]
  - NAUSEA [None]
  - TREMOR [None]
  - CHILLS [None]
  - CONSTIPATION [None]
  - VOMITING [None]
